FAERS Safety Report 17564174 (Version 1)
Quarter: 2020Q1

REPORT INFORMATION
  Report Type: Spontaneous
  Country: US (occurrence: US)
  Receive Date: 20200320
  Receipt Date: 20200320
  Transmission Date: 20200409
  Serious: Yes (Hospitalization)
  Sender: FDA-Public Use
  Company Number: US-ROCHE-2568191

PATIENT
  Age: 51 Year
  Sex: Male
  Weight: 113.5 kg

DRUGS (4)
  1. LOVENOX [Concomitant]
     Active Substance: ENOXAPARIN SODIUM
     Indication: MYOCARDIAL INFARCTION
  2. PLAVIX [Concomitant]
     Active Substance: CLOPIDOGREL BISULFATE
     Indication: MYOCARDIAL INFARCTION
  3. TNKASE [Suspect]
     Active Substance: TENECTEPLASE
     Indication: ACUTE MYOCARDIAL INFARCTION
     Dosage: AT 2:25 AM CENTRAL TIME,ONE SINGLE BOLUS
     Route: 042
     Dates: start: 20200312, end: 20200312
  4. NITRO [GLYCERYL TRINITRATE] [Concomitant]
     Active Substance: NITROGLYCERIN
     Indication: MYOCARDIAL INFARCTION
     Dosage: DRIP
     Route: 065

REACTIONS (3)
  - Accidental exposure to product [Unknown]
  - Myocardial infarction [Not Recovered/Not Resolved]
  - Electrocardiogram ST segment elevation [Not Recovered/Not Resolved]

NARRATIVE: CASE EVENT DATE: 20200312
